FAERS Safety Report 19085215 (Version 1)
Quarter: 2021Q2

REPORT INFORMATION
  Report Type: Spontaneous
  Country: EG (occurrence: EG)
  Receive Date: 20210402
  Receipt Date: 20210402
  Transmission Date: 20210717
  Serious: Yes (Disabling, Other)
  Sender: FDA-Public Use
  Company Number: EG-ABBVIE-21K-048-3839016-00

PATIENT
  Age: 70 Year
  Sex: Male

DRUGS (7)
  1. RISEK [Concomitant]
     Indication: COVID-19 TREATMENT
     Route: 042
  2. ALUVIA 200/50 [Suspect]
     Active Substance: LOPINAVIR\RITONAVIR
     Indication: COVID-19 TREATMENT
     Dosage: 2 TABLETS/ DAILY
     Route: 048
     Dates: start: 20210125, end: 20210128
  3. VITAMIN C [Concomitant]
     Active Substance: ASCORBIC ACID
     Indication: COVID-19 TREATMENT
     Route: 048
  4. SOLU?MEDROL [Concomitant]
     Active Substance: METHYLPREDNISOLONE SODIUM SUCCINATE
     Indication: COVID-19 TREATMENT
     Route: 042
  5. DANSET [Concomitant]
     Active Substance: ONDANSETRON HYDROCHLORIDE
     Indication: PROPHYLAXIS OF NAUSEA AND VOMITING
     Route: 042
  6. LEVOXIN [Concomitant]
     Active Substance: LEVOFLOXACIN
     Indication: COVID-19 TREATMENT
  7. MEROPENEM. [Concomitant]
     Active Substance: MEROPENEM
     Indication: COVID-19 TREATMENT
     Route: 042

REACTIONS (4)
  - Dysphagia [Recovering/Resolving]
  - Off label use [Unknown]
  - Tongue eruption [Recovering/Resolving]
  - Aphasia [Recovering/Resolving]

NARRATIVE: CASE EVENT DATE: 20210125
